FAERS Safety Report 6913479-8 (Version None)
Quarter: 2010Q3

REPORT INFORMATION
  Report Type: 
  Country: None (occurrence: None)
  Receive Date: 20100809
  Receipt Date: 20100803
  Transmission Date: 20110219
  Serious: No
  Sender: FDA-Public Use
  Company Number: US-ROXANE LABORATORIES, INC.-2010-RO-00877RO

PATIENT
  Sex: Male
  Weight: 64 kg

DRUGS (3)
  1. FLUTICASONE PROPIONATE [Suspect]
     Indication: SEASONAL ALLERGY
     Route: 045
     Dates: end: 20100720
  2. FLUTICASONE PROPIONATE [Suspect]
     Indication: POLYP
     Route: 045
  3. LEVOTHYROXINE [Concomitant]

REACTIONS (2)
  - AGEUSIA [None]
  - ANOSMIA [None]
